FAERS Safety Report 14588381 (Version 4)
Quarter: 2018Q3

REPORT INFORMATION
  Report Type: Spontaneous
  Country: ES (occurrence: ES)
  Receive Date: 20180301
  Receipt Date: 20180822
  Transmission Date: 20181010
  Serious: Yes (Hospitalization, Other)
  Sender: FDA-Public Use
  Company Number: PHHY2018ES034125

PATIENT
  Sex: Female
  Weight: 1.53 kg

DRUGS (4)
  1. CINACALCET. [Suspect]
     Active Substance: CINACALCET
     Indication: FOETAL EXPOSURE DURING PREGNANCY
     Dosage: 30 MG, UNK
     Route: 064
  2. FRUSEMIDE [Suspect]
     Active Substance: FUROSEMIDE
     Indication: FOETAL EXPOSURE DURING PREGNANCY
     Dosage: 20 MG, Q8H
     Route: 064
  3. BETAMETHASONE. [Suspect]
     Active Substance: BETAMETHASONE
     Indication: FOETAL EXPOSURE DURING PREGNANCY
     Dosage: 2 DF, QOD (DOSE 12 MG)
     Route: 064
  4. CALCITONIN, SALMON [Suspect]
     Active Substance: CALCITONIN SALMON
     Indication: FOETAL EXPOSURE DURING PREGNANCY
     Dosage: 100 IU, Q6H
     Route: 064

REACTIONS (8)
  - Low birth weight baby [Unknown]
  - Neonatal hypocalcaemia [Recovered/Resolved]
  - Jaundice neonatal [Recovered/Resolved]
  - Neonatal cholestasis [Recovered/Resolved]
  - Foetal heart rate deceleration abnormality [Unknown]
  - Foetal growth restriction [Unknown]
  - Bilirubin conjugated increased [Unknown]
  - Foetal exposure during pregnancy [Unknown]
